FAERS Safety Report 5944237-9 (Version None)
Quarter: 2008Q4

REPORT INFORMATION
  Report Type: 
  Country: None (occurrence: None)
  Receive Date: 20081104
  Receipt Date: 20081023
  Transmission Date: 20090506
  Serious: Yes (Hospitalization)
  Sender: FDA-Public Use
  Company Number: 2008AL003479

PATIENT
  Age: 75 Year
  Sex: Male
  Weight: 92.9874 kg

DRUGS (11)
  1. DIGOXIN [Suspect]
     Indication: ARRHYTHMIA
     Dosage: 0.125MG, DAILY,PO
     Route: 048
  2. AMAROUDIUM [Concomitant]
  3. CRESTOR [Concomitant]
  4. COREG [Concomitant]
  5. COZAAR [Concomitant]
  6. GLYBURIDE [Concomitant]
  7. ISOSORBIDE [Concomitant]
  8. METPHORMIN [Concomitant]
  9. ARMASOL [Concomitant]
  10. SPIRONOLACTONE [Concomitant]
  11. WARFARIN SODIUM [Concomitant]

REACTIONS (5)
  - CARDIAC ARREST [None]
  - DIARRHOEA [None]
  - GAIT DISTURBANCE [None]
  - VOMITING [None]
  - WEIGHT DECREASED [None]
